FAERS Safety Report 6295875-8 (Version None)
Quarter: 2009Q3

REPORT INFORMATION
  Report Type: 
  Country: None (occurrence: None)
  Receive Date: 20090731
  Receipt Date: 20090717
  Transmission Date: 20100115
  Serious: Yes (Hospitalization)
  Sender: FDA-Public Use
  Company Number: A-NJ2009-25733

PATIENT
  Age: 60 Year
  Sex: Male

DRUGS (3)
  1. VENTAVIS [Suspect]
     Indication: PULMONARY ARTERIAL HYPERTENSION
     Dosage: 5 UG, RESPIRATORY; 2.5 UG, 2-4 TIMES DAILY, RESPIRATORY
     Route: 055
     Dates: start: 20090101, end: 20090101
  2. VENTAVIS [Suspect]
     Indication: PULMONARY ARTERIAL HYPERTENSION
     Dosage: 5 UG, RESPIRATORY; 2.5 UG, 2-4 TIMES DAILY, RESPIRATORY
     Route: 055
     Dates: start: 20090506, end: 20090101
  3. REVATIO [Concomitant]

REACTIONS (9)
  - CHILLS [None]
  - COUGH [None]
  - DRUG HYPERSENSITIVITY [None]
  - DRY MOUTH [None]
  - FATIGUE [None]
  - FLUID OVERLOAD [None]
  - INFLUENZA LIKE ILLNESS [None]
  - OEDEMA PERIPHERAL [None]
  - SWELLING [None]
